FAERS Safety Report 18397795 (Version 1)
Quarter: 2020Q4

REPORT INFORMATION
  Report Type: Spontaneous
  Country: US (occurrence: US)
  Receive Date: 20201019
  Receipt Date: 20201019
  Transmission Date: 20210114
  Serious: Yes (Other)
  Sender: FDA-Public Use
  Company Number: None

PATIENT
  Age: 49 Year
  Sex: Female
  Weight: 59.4 kg

DRUGS (3)
  1. MOTRIN [Suspect]
     Active Substance: IBUPROFEN
     Indication: COVID-19
     Dates: start: 20201002, end: 20201017
  2. DIP AN 160 MG/ 25 HCT [Concomitant]
  3. MOTRIN [Suspect]
     Active Substance: IBUPROFEN
     Indication: PAIN
     Dates: start: 20201002, end: 20201017

REACTIONS (3)
  - Abdominal pain upper [None]
  - Insomnia [None]
  - Diarrhoea [None]

NARRATIVE: CASE EVENT DATE: 20201017
